FAERS Safety Report 8223202-5 (Version None)
Quarter: 2012Q1

REPORT INFORMATION
  Report Type: 
  Country: None (occurrence: None)
  Receive Date: 20120321
  Receipt Date: 20120305
  Transmission Date: 20120608
  Serious: Yes (Other)
  Sender: FDA-Public Use
  Company Number: DE-ROCHE-1046719

PATIENT
  Sex: Male

DRUGS (1)
  1. ROFERON-A [Suspect]
     Indication: MYCOSIS FUNGOIDES

REACTIONS (3)
  - VITAMIN B12 DEFICIENCY [None]
  - DEMYELINATION [None]
  - PARAESTHESIA [None]
